FAERS Safety Report 9301370 (Version 7)
Quarter: 2021Q3

REPORT INFORMATION
  Report Type: Report from Study
  Country: FR (occurrence: FR)
  Receive Date: 20130521
  Receipt Date: 20210901
  Transmission Date: 20211014
  Serious: Yes (Hospitalization)
  Sender: FDA-Public Use
  Company Number: FR-SHIRE-SPV1-2009-00649

PATIENT
  Age: 9 Year
  Sex: Male
  Weight: 32 kg

DRUGS (88)
  1. IDURSULFASE [Suspect]
     Active Substance: IDURSULFASE
     Dosage: 0.56 MILLIGRAM/KILOGRAM, 1/WEEK
     Route: 042
     Dates: start: 20070118
  2. IDURSULFASE [Suspect]
     Active Substance: IDURSULFASE
     Dosage: 1 MILLIGRAM/KILOGRAM, 1/WEEK
     Route: 042
     Dates: start: 20100210, end: 20150616
  3. CYAMEMAZINE [Concomitant]
     Active Substance: CYAMEMAZINE
     Dosage: UNK
     Route: 048
     Dates: end: 20130918
  4. CARBAMAZEPIN [Concomitant]
     Active Substance: CARBAMAZEPINE
     Indication: NEURALGIA
     Dosage: 500 MG, 1X/DAY:QD
     Route: 048
     Dates: start: 20060918
  5. RISPERDAL [Concomitant]
     Active Substance: RISPERIDONE
     Dosage: UNK
     Route: 048
     Dates: start: 20081205, end: 20150212
  6. RISPERDAL [Concomitant]
     Active Substance: RISPERIDONE
     Dosage: UNK
     Route: 048
     Dates: end: 20150228
  7. AUGMENTINE [AMOXICILLIN;CLAVULANIC ACID] [Concomitant]
     Active Substance: AMOXICILLIN\CLAVULANIC ACID
     Dosage: UNK
     Route: 048
     Dates: start: 20141216, end: 20150212
  8. OROKEN [Concomitant]
     Active Substance: CEFIXIME
     Indication: RESPIRATORY DISORDER
     Dosage: UNK
     Route: 048
     Dates: start: 201408, end: 201408
  9. FORLAX [Concomitant]
     Active Substance: POLYETHYLENE GLYCOL 4000
     Indication: CONSTIPATION
     Dosage: UNK
     Route: 048
     Dates: start: 20130513
  10. EFFERALGAN [Concomitant]
     Active Substance: ACETAMINOPHEN
     Indication: PAIN
     Dosage: UNK
     Route: 048
     Dates: end: 2013
  11. NASONEX [Concomitant]
     Active Substance: MOMETASONE FUROATE
     Indication: LOWER RESPIRATORY TRACT CONGESTION
     Dosage: UNK
     Route: 055
     Dates: start: 20131104, end: 20131204
  12. CAPTOPRIL. [Concomitant]
     Active Substance: CAPTOPRIL
     Indication: CARDIAC VALVE DISEASE
     Dosage: UNK
     Route: 048
     Dates: start: 201101, end: 20130313
  13. IDURSULFASE [Suspect]
     Active Substance: IDURSULFASE
     Dosage: 0.56 MILLIGRAM/KILOGRAM, 1/WEEK
     Route: 042
     Dates: start: 20061228, end: 20080820
  14. CARBAMAZEPIN [Concomitant]
     Active Substance: CARBAMAZEPINE
     Dosage: UNK
     Route: 048
     Dates: start: 2006
  15. ATARAX [Concomitant]
     Active Substance: HYDROXYZINE HYDROCHLORIDE
     Indication: PREMEDICATION
     Dosage: 15 MG, 1X/WEEK
     Route: 065
     Dates: start: 20061228
  16. SOLUPRED [METHYLPREDNISOLONE] [Concomitant]
     Active Substance: METHYLPREDNISOLONE
     Indication: ASTHMA
     Dosage: UNK
     Route: 048
     Dates: start: 20141216
  17. PHYSIOLOGICAL SALINE SOLUTION [Concomitant]
     Active Substance: SODIUM CHLORIDE
     Indication: OTORRHOEA
     Dosage: UNK
     Route: 050
     Dates: start: 20130311, end: 2013
  18. ZINNAT [CEFUROXIME AXETIL] [Concomitant]
     Active Substance: CEFUROXIME
     Indication: LUNG DISORDER
     Dosage: UNK
     Route: 048
     Dates: start: 20131104, end: 20131114
  19. VITAMIN D [VITAMIN D NOS] [Concomitant]
     Active Substance: VITAMIN D NOS
     Indication: VITAMIN D DEFICIENCY
     Dosage: UNK
     Route: 048
     Dates: start: 20140123, end: 2014
  20. ATARAX [Concomitant]
     Active Substance: HYDROXYZINE HYDROCHLORIDE
     Indication: AGITATION
     Dosage: UNK
     Route: 048
     Dates: start: 20150327
  21. FLIXOTIDE [Concomitant]
     Active Substance: FLUTICASONE PROPIONATE
     Dosage: UNK
     Route: 055
     Dates: start: 20140123
  22. BETADINE [Concomitant]
     Active Substance: POVIDONE-IODINE
     Indication: OTORRHOEA
     Dosage: UNK
     Route: 050
     Dates: start: 20130311, end: 2013
  23. SALBUTAMOL [Concomitant]
     Active Substance: ALBUTEROL
     Dosage: UNK
     Route: 055
     Dates: start: 201302, end: 201302
  24. IBUPROFEN. [Concomitant]
     Active Substance: IBUPROFEN
     Dosage: UNK
     Route: 065
     Dates: start: 2005
  25. ZITHROMAX [Concomitant]
     Active Substance: AZITHROMYCIN DIHYDRATE
     Indication: LOWER RESPIRATORY TRACT CONGESTION
     Dosage: UNK
     Route: 048
     Dates: start: 201503
  26. ZITHROMAX [Concomitant]
     Active Substance: AZITHROMYCIN DIHYDRATE
     Dosage: UNK
     Route: 048
     Dates: start: 20130412, end: 20130417
  27. GLYCERINE [Concomitant]
     Active Substance: GLYCERIN
     Indication: CONSTIPATION
     Dosage: UNK
     Route: 054
     Dates: start: 20130513, end: 2013
  28. MORPHINE [Concomitant]
     Active Substance: MORPHINE
     Indication: PAIN
     Dosage: UNK
     Route: 065
     Dates: start: 20150427, end: 20150427
  29. IDURSULFASE [Suspect]
     Active Substance: IDURSULFASE
     Dosage: 0.58 MILLIGRAM/KILOGRAM, 1/WEEK
     Route: 042
     Dates: start: 20070201
  30. CYAMEMAZINE [Concomitant]
     Active Substance: CYAMEMAZINE
     Indication: INSOMNIA
     Dosage: UNK
     Route: 048
     Dates: start: 2006
  31. OTHER THERAPEUTIC PRODUCTS [Concomitant]
     Active Substance: UNSPECIFIED INGREDIENT
     Indication: PREMEDICATION
     Dosage: UNK UNK, 1X/WEEK
     Route: 042
     Dates: start: 20061228
  32. SOLUPRED [METHYLPREDNISOLONE] [Concomitant]
     Active Substance: METHYLPREDNISOLONE
     Dosage: UNK
     Route: 048
     Dates: start: 201302, end: 201302
  33. VENTOLINE [SALBUTAMOL] [Concomitant]
     Active Substance: ALBUTEROL SULFATE
     Indication: ASTHMA
     Dosage: UNK
     Route: 048
     Dates: start: 20131104, end: 2015
  34. MOGADON [Concomitant]
     Active Substance: NITRAZEPAM
     Indication: INSOMNIA
     Dosage: UNK
     Route: 048
     Dates: start: 20150212, end: 201503
  35. ZITHROMAX [Concomitant]
     Active Substance: AZITHROMYCIN DIHYDRATE
     Indication: ASTHMA
     Dosage: UNK
     Route: 048
     Dates: start: 20150212, end: 20150221
  36. AUGMENTINE [AMOXICILLIN;CLAVULANIC ACID] [Concomitant]
     Active Substance: AMOXICILLIN\CLAVULANIC ACID
     Indication: PNEUMONIA ASPIRATION
     Dosage: UNK
     Route: 048
     Dates: start: 20150306, end: 20150321
  37. AUGMENTINE [AMOXICILLIN;CLAVULANIC ACID] [Concomitant]
     Active Substance: AMOXICILLIN\CLAVULANIC ACID
     Indication: LUNG DISORDER
     Dosage: UNK
     Route: 048
     Dates: start: 20131104, end: 20131114
  38. AUGMENTINE [AMOXICILLIN;CLAVULANIC ACID] [Concomitant]
     Active Substance: AMOXICILLIN\CLAVULANIC ACID
     Dosage: UNK
     Route: 048
     Dates: start: 20130412, end: 20130417
  39. MELATONINE [Concomitant]
     Active Substance: MELATONIN
     Indication: INSOMNIA
     Dosage: UNK
     Route: 048
     Dates: start: 20140304
  40. ZINNAT [CEFUROXIME AXETIL] [Concomitant]
     Active Substance: CEFUROXIME
     Indication: LOWER RESPIRATORY TRACT CONGESTION
     Dosage: UNK
     Route: 048
     Dates: start: 20141216, end: 20150212
  41. BISEPTINE [BENZALKONIUM CHLORIDE;BENZYL ALCOHOL;CHLORHEXIDINE] [Concomitant]
     Indication: INFLAMMATION
     Dosage: UNK
     Route: 061
     Dates: start: 20160527, end: 20160605
  42. INEXIUM [ESOMEPRAZOLE MAGNESIUM] [Concomitant]
     Active Substance: ESOMEPRAZOLE MAGNESIUM
     Indication: GASTROOESOPHAGEAL REFLUX DISEASE
     Dosage: UNK
     Route: 048
     Dates: start: 201112
  43. FLIXOTIDE [Concomitant]
     Active Substance: FLUTICASONE PROPIONATE
     Indication: ASTHMA
     Dosage: UNK
     Route: 055
     Dates: start: 20130412, end: 2013
  44. NITROUS OXIDE. [Concomitant]
     Active Substance: NITROUS OXIDE
     Indication: PAIN
     Dosage: UNK
     Route: 048
     Dates: start: 20061228
  45. IDURSULFASE [Suspect]
     Active Substance: IDURSULFASE
     Dosage: 0.75 MILLIGRAM/KILOGRAM, Q2WEEKS
     Route: 042
     Dates: start: 20150617
  46. IDURSULFASE [Suspect]
     Active Substance: IDURSULFASE
     Dosage: 0.75 MILLIGRAM/KILOGRAM, ONCE IN 2 WEEKS
     Route: 042
     Dates: start: 20150617
  47. SERETIDE [Concomitant]
     Active Substance: FLUTICASONE PROPIONATE\SALMETEROL XINAFOATE
     Indication: RESPIRATORY DISORDER
     Dosage: 2 DF, 2X/DAY:BID
     Dates: start: 20060918
  48. TETRABENAZINE. [Concomitant]
     Active Substance: TETRABENAZINE
     Indication: DYSKINESIA
     Dosage: UNK
     Route: 048
     Dates: start: 20150423
  49. RIFAMPICINE [Concomitant]
     Active Substance: RIFAMPIN
     Indication: SEPSIS
     Dosage: UNK
     Route: 048
     Dates: start: 20150327, end: 20150512
  50. UVEDOSE [Concomitant]
     Active Substance: CHOLECALCIFEROL
     Indication: VITAMIN D DEFICIENCY
     Dosage: UNK
     Route: 048
     Dates: start: 20150212, end: 201508
  51. DIPROSONE [Concomitant]
     Active Substance: BETAMETHASONE DIPROPIONATE
     Indication: INFLAMMATION
     Dosage: UNK
     Route: 061
     Dates: start: 20160527, end: 20160605
  52. IDURSULFASE [Suspect]
     Active Substance: IDURSULFASE
     Dosage: 0.58 MILLIGRAM/KILOGRAM, 1/WEEK
     Route: 042
     Dates: start: 20070104
  53. SERETIDE [Concomitant]
     Active Substance: FLUTICASONE PROPIONATE\SALMETEROL XINAFOATE
     Dosage: UNK
     Route: 055
     Dates: start: 2006, end: 2013
  54. SALBUTAMOL [Concomitant]
     Active Substance: ALBUTEROL
     Dosage: UNK
     Route: 055
     Dates: start: 20130521, end: 20140123
  55. IBUPROFEN. [Concomitant]
     Active Substance: IBUPROFEN
     Indication: PAIN
     Dosage: UNK, 1X/DAY:QD
     Route: 048
     Dates: start: 20060918
  56. IBUPROFEN. [Concomitant]
     Active Substance: IBUPROFEN
     Dosage: UNK
     Route: 048
     Dates: start: 2006
  57. RISPERDAL [Concomitant]
     Active Substance: RISPERIDONE
     Indication: AGITATION
     Dosage: 2 MG, 1X/DAY:QD
     Route: 048
     Dates: start: 20081205
  58. AMOXICILLINE [AMOXICILLIN SODIUM] [Concomitant]
     Active Substance: AMOXICILLIN SODIUM
     Indication: OTORRHOEA
     Dosage: UNK
     Route: 048
     Dates: start: 2012, end: 2012
  59. DOLIPRANE [Concomitant]
     Active Substance: ACETAMINOPHEN
     Indication: PAIN
     Dosage: UNK
     Route: 048
  60. AUGMENTINE [AMOXICILLIN;CLAVULANIC ACID] [Concomitant]
     Active Substance: AMOXICILLIN\CLAVULANIC ACID
     Indication: LOWER RESPIRATORY TRACT CONGESTION
     Dosage: UNK
     Route: 048
     Dates: start: 20130521, end: 2013
  61. BACTRIM [Concomitant]
     Active Substance: SULFAMETHOXAZOLE\TRIMETHOPRIM
     Indication: LUNG DISORDER
     Dosage: UNK
     Route: 048
     Dates: start: 20131101, end: 20131114
  62. BACTRIM [Concomitant]
     Active Substance: SULFAMETHOXAZOLE\TRIMETHOPRIM
     Indication: LOWER RESPIRATORY TRACT CONGESTION
     Dosage: UNK
     Route: 048
     Dates: start: 20141216, end: 20150212
  63. CAPTOPRIL. [Concomitant]
     Active Substance: CAPTOPRIL
     Dosage: UNK
     Route: 048
     Dates: start: 201305
  64. NUTRISON [NUTRIENTS NOS] [Concomitant]
     Active Substance: AMINO ACIDS\CARBOHYDRATES\MINERALS\SOYBEAN OIL\VITAMINS
     Indication: MALNUTRITION
     Dosage: UNK
     Route: 050
     Dates: start: 20150608
  65. TEGRETOL [Concomitant]
     Active Substance: CARBAMAZEPINE
     Indication: SEIZURE
     Dosage: UNK
     Route: 048
     Dates: start: 2013
  66. IDURSULFASE [Suspect]
     Active Substance: IDURSULFASE
     Indication: MUCOPOLYSACCHARIDOSIS II
     Dosage: 18 MG, 1X/WEEK
     Route: 041
     Dates: start: 20061228
  67. IDURSULFASE [Suspect]
     Active Substance: IDURSULFASE
     Dosage: 1 MILLIGRAM/KILOGRAM, 1/WEEK
     Route: 042
     Dates: start: 20080919, end: 20150616
  68. SALBUTAMOL [Concomitant]
     Active Substance: ALBUTEROL
     Indication: RESPIRATORY DISORDER
     Dosage: 1 DF, 2X/DAY:BID
     Route: 048
     Dates: start: 20060918
  69. SALBUTAMOL [Concomitant]
     Active Substance: ALBUTEROL
     Indication: ASTHMA
     Dosage: UNK
     Route: 048
     Dates: start: 2015
  70. SALBUTAMOL [Concomitant]
     Active Substance: ALBUTEROL
     Dosage: UNK
     Route: 048
     Dates: start: 2006
  71. LAROXYL [Concomitant]
     Active Substance: AMITRIPTYLINE HYDROCHLORIDE
     Dosage: UNK
     Route: 048
     Dates: start: 2006
  72. PARACETAMOL/CODEINEFOSFAAT [Concomitant]
     Active Substance: ACETAMINOPHEN\CODEINE PHOSPHATE
     Indication: AGITATION
     Dosage: 3 DF, 1X/DAY:QD
     Route: 048
     Dates: start: 20081205
  73. SOLUPRED [METHYLPREDNISOLONE] [Concomitant]
     Active Substance: METHYLPREDNISOLONE
     Indication: NASAL CONGESTION
     Dosage: UNK
     Route: 048
     Dates: start: 201408, end: 201408
  74. VENTOLINE [SALBUTAMOL] [Concomitant]
     Active Substance: ALBUTEROL SULFATE
     Dosage: UNK
     Route: 055
     Dates: start: 201302, end: 201302
  75. CLINUTREN FRUIT [Concomitant]
     Indication: NUTRITIONAL SUPPLEMENTATION
     Dosage: UNK
     Route: 048
     Dates: start: 201505, end: 201506
  76. OROKEN [Concomitant]
     Active Substance: CEFIXIME
     Indication: OTORRHOEA
     Dosage: UNK
     Route: 048
     Dates: start: 2012, end: 2012
  77. ZYVOXID [Concomitant]
     Active Substance: LINEZOLID
     Indication: SEPSIS
     Dosage: UNK
     Route: 048
     Dates: start: 20150327, end: 20150427
  78. PREGABALINE [Concomitant]
     Active Substance: PREGABALIN
     Indication: DYSKINESIA
     Dosage: UNK
     Route: 048
     Dates: start: 201506
  79. OFLOCET [OFLOXACIN HYDROCHLORIDE] [Concomitant]
     Active Substance: OFLOXACIN
     Indication: OTORRHOEA
     Dosage: UNK
     Route: 050
     Dates: start: 2012, end: 2012
  80. LAROXYL [Concomitant]
     Active Substance: AMITRIPTYLINE HYDROCHLORIDE
     Indication: NEURALGIA
     Dosage: 15 DF, 2X/DAY:BID
     Route: 048
     Dates: start: 20060918
  81. CYAMEMAZINE [Concomitant]
     Active Substance: CYAMEMAZINE
     Indication: AGITATION
     Dosage: 15 DF, 1X/DAY:QD
     Route: 048
     Dates: start: 20060918
  82. PARACETAMOL/CODEINEFOSFAAT [Concomitant]
     Active Substance: ACETAMINOPHEN\CODEINE PHOSPHATE
     Dosage: UNK
     Route: 048
     Dates: start: 20081205
  83. NEULEPTIL [PERICIAZINE] [Concomitant]
     Active Substance: PERICIAZINE
     Indication: AGITATION
     Dosage: UNK
     Route: 048
     Dates: start: 200808, end: 200901
  84. ULTRA LEVURE [Concomitant]
     Active Substance: SACCHAROMYCES CEREVISIAE
     Indication: FUNCTIONAL GASTROINTESTINAL DISORDER
     Dosage: UNK
     Route: 048
     Dates: start: 20131104
  85. CONTRAMAL [Concomitant]
     Active Substance: TRAMADOL HYDROCHLORIDE
     Indication: PAIN
     Dosage: UNK
     Route: 048
     Dates: start: 20150327, end: 201506
  86. INFLUENZA VACCINE [Concomitant]
     Active Substance: INFLUENZA VIRUS VACCINE
     Indication: ANTIVIRAL PROPHYLAXIS
     Dosage: UNK
     Route: 030
     Dates: start: 20140123, end: 20140123
  87. LINOLEIC ACID COMP [ETHYL LINOLEATE;PYRIDOXINE HYDROCHLORIDE;TOCOPHERO [Concomitant]
     Indication: DECUBITUS ULCER
     Dosage: UNK
     Route: 061
     Dates: start: 2013, end: 2013
  88. EFFERALGAN CODEINE [Concomitant]
     Active Substance: ACETAMINOPHEN\CODEINE PHOSPHATE
     Indication: PAIN
     Dosage: UNK
     Route: 048
     Dates: start: 201204, end: 201501

REACTIONS (4)
  - Lung disorder [Recovered/Resolved]
  - Nasopharyngitis [Recovered/Resolved]
  - Asthma [Recovered/Resolved]
  - Tachypnoea [Recovered/Resolved]

NARRATIVE: CASE EVENT DATE: 20070516
